FAERS Safety Report 10592327 (Version 1)
Quarter: 2014Q4

REPORT INFORMATION
  Report Type: Spontaneous
  Country: US (occurrence: None)
  Receive Date: 20141117
  Receipt Date: 20141117
  Transmission Date: 20150529
  Serious: Yes (Other)
  Sender: FDA-Public Use
  Company Number: VAL_03596_2014

PATIENT
  Age: 27 Year
  Sex: Female

DRUGS (7)
  1. FUROSEMIDE. [Suspect]
     Active Substance: FUROSEMIDE
     Indication: PRODUCT USED FOR UNKNOWN INDICATION
     Dosage: DF
  2. METOPROLOL [Suspect]
     Active Substance: METOPROLOL
     Indication: HEART RATE INCREASED
     Dosage: DF
     Route: 042
  3. METHYLPREDNISOLONE. [Suspect]
     Active Substance: METHYLPREDNISOLONE
     Indication: PRODUCT USED FOR UNKNOWN INDICATION
     Dosage: DF
  4. VANCOMYCIN [Suspect]
     Active Substance: VANCOMYCIN
     Indication: PRODUCT USED FOR UNKNOWN INDICATION
     Dosage: DF
  5. OXYTOCIN. [Suspect]
     Active Substance: OXYTOCIN
     Indication: PRODUCT USED FOR UNKNOWN INDICATION
     Dosage: DF
  6. CEFTAZIDIME. [Suspect]
     Active Substance: CEFTAZIDIME
     Indication: PRODUCT USED FOR UNKNOWN INDICATION
     Dosage: DF
  7. PRENATAL VITAMINS [Concomitant]
     Active Substance: VITAMINS

REACTIONS (11)
  - Rales [None]
  - Pulmonary oedema [None]
  - Heart rate increased [None]
  - Respiratory rate increased [None]
  - Tachycardia [None]
  - Chest pain [None]
  - Haemoptysis [None]
  - Cough [None]
  - Respiratory distress [None]
  - Oxygen saturation decreased [None]
  - Right ventricular hypertrophy [None]
